FAERS Safety Report 4992732-1 (Version None)
Quarter: 2006Q1

REPORT INFORMATION
  Report Type: 
  Country: None (occurrence: None)
  Receive Date: 20060315
  Receipt Date: 20050912
  Transmission Date: 20060701
  Serious: Yes (Other)
  Sender: FDA-Public Use
  Company Number: USA0506100010

PATIENT
  Age: 41 Year
  Sex: Female
  Weight: 45 kg

DRUGS (2)
  1. GEMZAR [Suspect]
     Indication: PANCREATIC CARCINOMA
     Dosage: 50 MG, INTRAVENOUS
     Route: 042
     Dates: start: 20050519
  2. RADIATION THERAPY (RADIATION THERAPY) [Concomitant]

REACTIONS (2)
  - ARTHRALGIA [None]
  - NEUTROPENIA [None]
